FAERS Safety Report 23162647 (Version 1)
Quarter: 2023Q4

REPORT INFORMATION
  Report Type: Spontaneous
  Country: GB (occurrence: GB)
  Receive Date: 20231109
  Receipt Date: 20231109
  Transmission Date: 20240110
  Serious: Yes (Other)
  Sender: FDA-Public Use
  Company Number: None

PATIENT
  Age: 24 Year
  Sex: Female
  Weight: 59 kg

DRUGS (15)
  1. COLESEVELAM HYDROCHLORIDE [Suspect]
     Active Substance: COLESEVELAM HYDROCHLORIDE
     Indication: Product used for unknown indication
     Dosage: 625 MILLIGRAM (TABLET, UNCOATED)
     Route: 048
     Dates: start: 20221012
  2. AMITRIPTYLINE HYDROCHLORIDE [Concomitant]
     Active Substance: AMITRIPTYLINE HYDROCHLORIDE
     Indication: Product used for unknown indication
     Dosage: 1 DOSAGE FORM, QD (TABLET, UNCOATED) (AT NIGHT)
     Route: 048
     Dates: start: 20211006
  3. Aqueous Cream [Concomitant]
     Indication: Product used for unknown indication
     Dosage: UNK (AS NECESSARY,AS A SOAP SUBSTITUTE)
     Route: 065
     Dates: start: 20211006
  4. BENZOYL PEROXIDE [Concomitant]
     Active Substance: BENZOYL PEROXIDE
     Indication: Product used for unknown indication
     Dosage: UNK (APPLY AT NIGHT)
     Route: 065
     Dates: start: 20211006
  5. DEPO-PROVERA [Concomitant]
     Active Substance: MEDROXYPROGESTERONE ACETATE
     Indication: Product used for unknown indication
     Dosage: UNK (USE AS DIRECTED)
     Route: 065
     Dates: start: 20220901, end: 20220902
  6. Germoloids [Concomitant]
     Indication: Product used for unknown indication
     Dosage: 2 DOSAGE FORM, QD (APPLY)
     Route: 065
     Dates: start: 20220922, end: 20221012
  7. HYDROCORTISONE [Concomitant]
     Active Substance: HYDROCORTISONE
     Indication: Product used for unknown indication
     Dosage: UNK (APPLY AS DIRECTED)
     Route: 065
     Dates: start: 20220922, end: 20220922
  8. LIDOCAINE HYDROCHLORIDE [Concomitant]
     Active Substance: DEXTROSE MONOHYDRATE\EPINEPHRINE\EPINEPHRINE BITARTRATE\LIDOCAINE\LIDOCAINE HYDROCHLORIDE\LIDOCAINE
     Indication: Product used for unknown indication
     Dosage: 2 DOSAGE FORM, QD (APPLY)
     Route: 065
     Dates: start: 20220914
  9. LOPERAMIDE [Concomitant]
     Active Substance: LOPERAMIDE
     Indication: Product used for unknown indication
     Dosage: 3 DOSAGE FORM, QD (AS REQIURED)
     Route: 065
     Dates: start: 20220804
  10. MEBEVERINE HYDROCHLORIDE [Concomitant]
     Active Substance: MEBEVERINE HYDROCHLORIDE
     Indication: Product used for unknown indication
     Dosage: 3 DOSAGE FORM, QD
     Route: 065
     Dates: start: 20211006
  11. OMEPRAZOLE [Concomitant]
     Active Substance: OMEPRAZOLE
     Indication: Product used for unknown indication
     Dosage: 1 DOSAGE FORM, QD
     Route: 065
     Dates: start: 20211006
  12. CALCIUM CARBONATE\SODIUM ALGINATE\SODIUM BICARBONATE [Concomitant]
     Active Substance: CALCIUM CARBONATE\SODIUM ALGINATE\SODIUM BICARBONATE
     Indication: Product used for unknown indication
     Dosage: UNK (AFTER MEALS AND AT BEDTIME)
     Route: 065
     Dates: start: 20211006
  13. PENICILLIN V [Concomitant]
     Active Substance: PENICILLIN V
     Indication: Infection
     Dosage: 8 DOSAGE FORM, QD (TABLET, UNCOATED)
     Route: 048
     Dates: start: 20220902, end: 20220912
  14. Zerobase [Concomitant]
     Indication: Product used for unknown indication
     Dosage: UNK (APPLY AS DIRECTED)
     Route: 065
     Dates: start: 20211006
  15. Zeroderma Emollient Medicinal Bath [Concomitant]
     Indication: Product used for unknown indication
     Dosage: UNK (AS NECESSARY, AS A SOAP SUBSTITUTE)
     Route: 065
     Dates: start: 20220817, end: 20220914

REACTIONS (1)
  - Constipation [Recovered/Resolved]

NARRATIVE: CASE EVENT DATE: 20221012
